FAERS Safety Report 4842522-5 (Version None)
Quarter: 2005Q4

REPORT INFORMATION
  Report Type: 
  Country: None (occurrence: None)
  Receive Date: 20051129
  Receipt Date: 20051122
  Transmission Date: 20060501
  Serious: Yes (Hospitalization)
  Sender: FDA-Public Use
  Company Number: 002#4#2005-00370

PATIENT
  Age: 84 Year
  Sex: Female

DRUGS (17)
  1. REGLAN [Suspect]
     Dosage: 10MG, 3 IN 1 D, ORAL
     Route: 048
     Dates: start: 20030317, end: 20040321
  2. BIVALIRUDIN [Suspect]
     Dosage: SEE IMAGE
     Route: 041
     Dates: start: 20040307, end: 20040307
  3. BIVALIRUDIN [Suspect]
     Dosage: SEE IMAGE
     Route: 041
     Dates: start: 20050317, end: 20050307
  4. CLOPIDOGREL [Concomitant]
  5. DICYCLOVERINE [Concomitant]
  6. RANITDINE [Concomitant]
  7. FAMOTIDINE [Concomitant]
  8. LISINOPRIL [Concomitant]
  9. GLYCERYL-TRINITRATE [Concomitant]
  10. POLYCARBOPHIL [Concomitant]
  11. TYLENOL (CAPLET) [Concomitant]
  12. CALCIUM GLUCONATE [Concomitant]
  13. MULTIVITAMIN [Concomitant]
  14. NIFEDIPINE [Concomitant]
  15. SIMETHICONE [Concomitant]
  16. DICYCLOVERINE [Concomitant]
  17. ... [Concomitant]

REACTIONS (7)
  - BLOOD CHLORIDE INCREASED [None]
  - CHEST PAIN [None]
  - DIZZINESS POSTURAL [None]
  - HAEMATOCRIT DECREASED [None]
  - RED BLOOD CELL COUNT DECREASED [None]
  - SUPRAVENTRICULAR TACHYCARDIA [None]
  - TROPONIN INCREASED [None]
